FAERS Safety Report 5160058-1 (Version None)
Quarter: 2006Q4

REPORT INFORMATION
  Report Type: 
  Country: None (occurrence: None)
  Receive Date: 20061129
  Receipt Date: 20060824
  Transmission Date: 20070319
  Serious: No
  Sender: FDA-Public Use
  Company Number: US-GLAXOSMITHKLINE-A0617996A

PATIENT
  Age: 65 Year
  Sex: Male

DRUGS (2)
  1. WELLBUTRIN SR [Suspect]
     Indication: DEPRESSION
     Dosage: 100MG PER DAY
     Route: 048
     Dates: start: 20060824
  2. BUSPAR [Concomitant]

REACTIONS (3)
  - FEELING JITTERY [None]
  - ILL-DEFINED DISORDER [None]
  - WRONG TECHNIQUE IN DRUG USAGE PROCESS [None]
